FAERS Safety Report 5348903-8 (Version None)
Quarter: 2007Q2

REPORT INFORMATION
  Report Type: 
  Country: None (occurrence: None)
  Receive Date: 20070607
  Receipt Date: 20070601
  Transmission Date: 20071010
  Serious: Yes (Death, Other)
  Sender: FDA-Public Use
  Company Number: PHBS2007JP08568

PATIENT
  Age: 15 Year
  Sex: Male

DRUGS (5)
  1. CYCLOSPORINE [Suspect]
     Indication: CORD BLOOD TRANSPLANT THERAPY
     Route: 065
  2. PREDNISOLONE [Suspect]
     Indication: CORD BLOOD TRANSPLANT THERAPY
     Dosage: 0.5 MG/KD/DAY
     Route: 065
  3. PREDNISOLONE [Suspect]
     Dosage: 1 MG/KG/DAY
  4. BUSULFAN [Concomitant]
     Dosage: 16 MG/KG
  5. L-PAM [Concomitant]

REACTIONS (6)
  - ADENOVIRUS INFECTION [None]
  - CONVULSION [None]
  - DEPRESSED LEVEL OF CONSCIOUSNESS [None]
  - GRAFT VERSUS HOST DISEASE [None]
  - NEUROLOGICAL SYMPTOM [None]
  - PAIN IN EXTREMITY [None]
